FAERS Safety Report 12932706 (Version 2)
Quarter: 2017Q3

REPORT INFORMATION
  Report Type: Spontaneous
  Country: JP (occurrence: JP)
  Receive Date: 20161111
  Receipt Date: 20170926
  Transmission Date: 20171127
  Serious: Yes (Death, Other)
  Sender: FDA-Public Use
  Company Number: JP-UCBSA-2016041659

PATIENT
  Age: 69 Year
  Sex: Female

DRUGS (5)
  1. E KEPPRA [Concomitant]
     Active Substance: LEVETIRACETAM
     Indication: VOMITING
     Dosage: UNK
     Dates: start: 20160709, end: 20160719
  2. E KEPPRA [Suspect]
     Active Substance: LEVETIRACETAM
     Indication: SIMPLE PARTIAL SEIZURES
  3. E KEPPRA [Suspect]
     Active Substance: LEVETIRACETAM
     Indication: SEIZURE
     Dosage: 1000 MG, 2X/DAY (BID)
     Route: 048
     Dates: start: 20160719
  4. MIYA-BM [Concomitant]
     Active Substance: CLOSTRIDIUM BUTYRICUM SPORES STRAIN M-55
     Indication: PRODUCT USED FOR UNKNOWN INDICATION
     Dosage: UNK
     Dates: start: 20160628, end: 20160806
  5. DEPAKENE [Concomitant]
     Active Substance: VALPROIC ACID
     Indication: SIMPLE PARTIAL SEIZURES
     Dosage: UNK
     Dates: start: 20160628, end: 20160806

REACTIONS (2)
  - Acute kidney injury [Fatal]
  - Brain neoplasm [Fatal]

NARRATIVE: CASE EVENT DATE: 2016
